FAERS Safety Report 5938017-8 (Version None)
Quarter: 2008Q4

REPORT INFORMATION
  Report Type: 
  Country: None (occurrence: None)
  Receive Date: 20081031
  Receipt Date: 20081020
  Transmission Date: 20090506
  Serious: Yes (Other)
  Sender: FDA-Public Use
  Company Number: US-PFIZER INC-2008088116

PATIENT
  Sex: Male
  Weight: 82.6 kg

DRUGS (1)
  1. RELPAX [Suspect]
     Indication: MIGRAINE
     Dates: start: 20081013, end: 20081014

REACTIONS (4)
  - CHEILITIS [None]
  - ERYTHEMA [None]
  - LIP PAIN [None]
  - LIP SWELLING [None]
